FAERS Safety Report 11988526 (Version 2)
Quarter: 2016Q1

REPORT INFORMATION
  Report Type: Report from Study
  Country: ZA (occurrence: ZA)
  Receive Date: 20160202
  Receipt Date: 20160203
  Transmission Date: 20160526
  Serious: Yes (Death, Other)
  Sender: FDA-Public Use
  Company Number: ZA-AMGEN-ZAFSL2016010623

PATIENT
  Sex: Male

DRUGS (1)
  1. ARANESP [Suspect]
     Active Substance: DARBEPOETIN ALFA
     Indication: CHRONIC KIDNEY DISEASE
     Dosage: 30 MUG, QMO
     Route: 058
     Dates: start: 20151006, end: 201601

REACTIONS (1)
  - Death [Fatal]
